FAERS Safety Report 22893884 (Version 3)
Quarter: 2024Q1

REPORT INFORMATION
  Report Type: Spontaneous
  Country: US (occurrence: US)
  Receive Date: 20230901
  Receipt Date: 20240327
  Transmission Date: 20240410
  Serious: Yes (Hospitalization)
  Sender: FDA-Public Use
  Company Number: US-VERTEX PHARMACEUTICALS-2023-006311

PATIENT

DRUGS (3)
  1. TRIKAFTA [Suspect]
     Active Substance: ELEXACAFTOR\IVACAFTOR\TEZACAFTOR
     Indication: Cystic fibrosis
     Dosage: UNKNOWN
     Route: 048
     Dates: start: 2020
  2. PULMOZYME [Concomitant]
     Active Substance: DORNASE ALFA
  3. TOBI [Concomitant]
     Active Substance: TOBRAMYCIN

REACTIONS (4)
  - Hospitalisation [Unknown]
  - Feeling abnormal [Unknown]
  - Illness [Unknown]
  - Anger [Not Recovered/Not Resolved]
